FAERS Safety Report 4953962-8 (Version None)
Quarter: 2006Q1

REPORT INFORMATION
  Report Type: 
  Country: None (occurrence: None)
  Receive Date: 20060321
  Receipt Date: 20060308
  Transmission Date: 20060701
  Serious: Yes (Other)
  Sender: FDA-Public Use
  Company Number: 200610936GDS

PATIENT
  Age: 71 Year
  Sex: Male

DRUGS (1)
  1. VARDENAFIL [Suspect]
     Indication: ERECTILE DYSFUNCTION
     Dosage: 20 MG, TOTAL DAILY

REACTIONS (3)
  - AMNESIA [None]
  - HEADACHE [None]
  - VISION BLURRED [None]
